FAERS Safety Report 25436332 (Version 1)
Quarter: 2025Q2

REPORT INFORMATION
  Report Type: Report from Study
  Country: US (occurrence: US)
  Receive Date: 20250614
  Receipt Date: 20250614
  Transmission Date: 20250716
  Serious: Yes (Other)
  Sender: ALEXION PHARMACEUTICALS
  Company Number: US-AstraZeneca-CH-00890134A

PATIENT

DRUGS (1)
  1. DAPAGLIFLOZIN [Suspect]
     Active Substance: DAPAGLIFLOZIN
     Route: 065

REACTIONS (4)
  - Renal impairment [Unknown]
  - Urinary tract infection [Unknown]
  - Blood potassium increased [Unknown]
  - Therapy cessation [Unknown]
